FAERS Safety Report 21028137 (Version 1)
Quarter: 2022Q2

REPORT INFORMATION
  Report Type: Spontaneous
  Country: FR (occurrence: FR)
  Receive Date: 20220630
  Receipt Date: 20220630
  Transmission Date: 20220721
  Serious: Yes (Other)
  Sender: FDA-Public Use
  Company Number: None

PATIENT
  Age: 62 Year
  Sex: Male
  Weight: 64 kg

DRUGS (5)
  1. BORTEZOMIB [Suspect]
     Active Substance: BORTEZOMIB
     Indication: Product used for unknown indication
     Dosage: THERAPY START DATE AND END DATE : ASKU
     Route: 065
  2. HEPARIN CALCIUM [Suspect]
     Active Substance: HEPARIN CALCIUM
     Indication: Thrombosis prophylaxis
     Dosage: 10000 IU (INTERNATIONAL UNIT) DAILY;
     Route: 058
     Dates: start: 20220429
  3. CALCIPARINE [Suspect]
     Active Substance: HEPARIN CALCIUM
     Indication: Thrombosis prophylaxis
     Dosage: UNIT DOSE: 5000 IU, FREQUENCY : 12 HOURS
     Route: 058
     Dates: start: 20220429
  4. DARATUMUMAB [Suspect]
     Active Substance: DARATUMUMAB
     Indication: Plasma cell myeloma
     Dosage: UNK, THERAPY START DATE AND END DATE : ASKU
     Route: 065
  5. REVLIMID [Suspect]
     Active Substance: LENALIDOMIDE
     Indication: Plasma cell myeloma
     Dosage: 5 MILLIGRAM DAILY;
     Route: 048
     Dates: start: 20220429, end: 20220501

REACTIONS (1)
  - Hepatic cytolysis [Recovering/Resolving]

NARRATIVE: CASE EVENT DATE: 20220501
